FAERS Safety Report 9500251 (Version 1)
Quarter: 2013Q1

REPORT INFORMATION
  Report Type: Spontaneous
  Country: US (occurrence: None)
  Receive Date: 20130107
  Receipt Date: 20130107
  Transmission Date: 20140127
  Serious: No
  Sender: FDA-Public Use
  Company Number: PHEH2012US022843

PATIENT
  Sex: Female
  Weight: 72.6 kg

DRUGS (5)
  1. GILENYA [Suspect]
     Indication: MULTIPLE SCLEROSIS
     Route: 048
  2. BACLOFEN (BACLOFEN) [Concomitant]
  3. METANX (CALCIUM MEFOLINATE, PYRIDOXINE HYDROCHLORIDE, VITAMIN B12 NOS) [Concomitant]
  4. VITAMIN D (ERGOCALCIFEROL) [Concomitant]
  5. EXCEDRIN (ACETYLSALICYLIC ACID, CAFFEINE, PARACETAMOL, SALICYLAMIDE) [Concomitant]

REACTIONS (2)
  - Hypoaesthesia [None]
  - Vision blurred [None]
